FAERS Safety Report 7577133-4 (Version None)
Quarter: 2011Q2

REPORT INFORMATION
  Report Type: 
  Country: None (occurrence: None)
  Receive Date: 20110628
  Receipt Date: 20110607
  Transmission Date: 20111010
  Serious: Yes (Death, Other)
  Sender: FDA-Public Use
  Company Number: US-BAYER-201021348NA

PATIENT
  Age: 19 Year
  Sex: Female
  Weight: 63.492 kg

DRUGS (1)
  1. YASMIN [Suspect]
     Indication: CONTRACEPTION
     Dosage: UNK UNK, UNK
     Route: 048
     Dates: start: 20060826, end: 20070326

REACTIONS (9)
  - CARDIAC VENTRICULAR DISORDER [None]
  - INTRACARDIAC THROMBUS [None]
  - DILATATION VENTRICULAR [None]
  - CARDIO-RESPIRATORY ARREST [None]
  - SUDDEN DEATH [None]
  - GRAND MAL CONVULSION [None]
  - PULMONARY EMBOLISM [None]
  - PARTIAL SEIZURES [None]
  - FALL [None]
